FAERS Safety Report 25363120 (Version 1)
Quarter: 2025Q2

REPORT INFORMATION
  Report Type: Report from Study
  Country: AR (occurrence: AR)
  Receive Date: 20250527
  Receipt Date: 20250527
  Transmission Date: 20250717
  Serious: Yes (Other)
  Sender: BAYER HEALTHCARE PHARMACEUTICALS INC.
  Company Number: AR-BAYER-2025A068002

PATIENT
  Age: 74 Year
  Sex: Male
  Weight: 96 kg

DRUGS (16)
  1. FINERENONE [Suspect]
     Active Substance: FINERENONE
     Indication: Chronic kidney disease
     Dosage: 10 MG, QD
     Dates: start: 20240816, end: 20241013
  2. FINERENONE [Suspect]
     Active Substance: FINERENONE
     Indication: Type 2 diabetes mellitus
     Dosage: 20 MG, QD
     Dates: start: 20241014, end: 20250513
  3. FINERENONE [Suspect]
     Active Substance: FINERENONE
     Indication: Chronic kidney disease
     Dosage: 10 MG, QD
     Dates: start: 20250514
  4. VALSARTAN [Concomitant]
     Active Substance: VALSARTAN
  5. HYDROCHLOROTHIAZIDE [Concomitant]
     Active Substance: HYDROCHLOROTHIAZIDE
  6. ASPIRIN [Concomitant]
     Active Substance: ASPIRIN
  7. AMIODARONE [Concomitant]
     Active Substance: AMIODARONE
  8. BISOPROLOL [Concomitant]
     Active Substance: BISOPROLOL
  9. ATORVASTATIN [Concomitant]
     Active Substance: ATORVASTATIN
  10. THIOCTIC ACID [Concomitant]
     Active Substance: THIOCTIC ACID
  11. PREGABALIN [Concomitant]
     Active Substance: PREGABALIN
  12. DAPAGLIFLOZIN [Concomitant]
     Active Substance: DAPAGLIFLOZIN
     Indication: Type 2 diabetes mellitus
  13. FLUTICASONE PROPIONATE [Concomitant]
     Active Substance: FLUTICASONE PROPIONATE
  14. BUDESONIDE [Concomitant]
     Active Substance: BUDESONIDE
  15. LEVOTHYROXINE [Concomitant]
     Active Substance: LEVOTHYROXINE
  16. CLONAZEPAM [Concomitant]
     Active Substance: CLONAZEPAM

REACTIONS (1)
  - Blood creatinine increased [Unknown]

NARRATIVE: CASE EVENT DATE: 20250508
